FAERS Safety Report 6432829-2 (Version None)
Quarter: 2009Q4

REPORT INFORMATION
  Report Type: 
  Country: None (occurrence: None)
  Receive Date: 20091109
  Receipt Date: 20091030
  Transmission Date: 20100525
  Serious: Yes (Life-Threatening, Hospitalization)
  Sender: FDA-Public Use
  Company Number: B0586316A

PATIENT
  Sex: Female
  Weight: 65 kg

DRUGS (9)
  1. LAMOTRIGINE [Suspect]
     Indication: DRUG USE FOR UNKNOWN INDICATION
     Dosage: 200MCG PER DAY
     Route: 065
     Dates: start: 20090126, end: 20090319
  2. SEROQUEL [Suspect]
     Indication: DEPRESSION
     Dosage: 400MG PER DAY
     Route: 048
     Dates: start: 20090116
  3. NORTRIPTYLINE [Suspect]
     Indication: DEPRESSION
     Dosage: 150MG PER DAY
     Route: 065
     Dates: start: 20050101, end: 20090319
  4. OXAZEPAM [Concomitant]
     Dosage: 15MG THREE TIMES PER DAY
     Route: 048
  5. LAKTULOS [Concomitant]
     Dosage: 15ML TWICE PER DAY
     Route: 048
  6. DOCUSATE SODIUM [Concomitant]
     Route: 054
  7. FURIX [Concomitant]
     Route: 042
  8. MEROPENEM [Concomitant]
     Route: 065
  9. UNKNOWN [Concomitant]
     Dosage: 250ML PER DAY
     Route: 065

REACTIONS (5)
  - DRUG INTERACTION [None]
  - LEUKOPENIA [None]
  - MONOCYTOSIS [None]
  - NEUTROPHILIA [None]
  - PYREXIA [None]
